FAERS Safety Report 5835591-7 (Version None)
Quarter: 2008Q3

REPORT INFORMATION
  Report Type: 
  Country: None (occurrence: None)
  Receive Date: 20080806
  Receipt Date: 20080722
  Transmission Date: 20090109
  Serious: Yes (Other)
  Sender: FDA-Public Use
  Company Number: PHHY2008FR16738

PATIENT
  Age: 58 Year
  Sex: Male

DRUGS (1)
  1. VALSARTAN [Suspect]
     Indication: HYPERTENSION
     Dosage: 1 IN 1DAY
     Route: 048
     Dates: start: 20080101

REACTIONS (3)
  - BLOOD TESTOSTERONE DECREASED [None]
  - DEHYDROEPIANDROSTERONE DECREASED [None]
  - FATIGUE [None]
